FAERS Safety Report 5403358-X (Version None)
Quarter: 2007Q3

REPORT INFORMATION
  Report Type: 
  Country: None (occurrence: None)
  Receive Date: 20070718
  Receipt Date: 20060905
  Transmission Date: 20080115
  Serious: Yes (Hospitalization)
  Sender: FDA-Public Use
  Company Number: 2006112003

PATIENT
  Age: 73 Year
  Sex: 0

DRUGS (2)
  1. CELEBREX [Suspect]
     Indication: DRUG USE FOR UNKNOWN INDICATION
     Dates: start: 19991001
  2. PLAVIX [Concomitant]

REACTIONS (1)
  - HAEMORRHAGE [None]
